FAERS Safety Report 10026333 (Version 3)
Quarter: 2018Q2

REPORT INFORMATION
  Report Type: Spontaneous
  Country: US (occurrence: US)
  Receive Date: 20140321
  Receipt Date: 20180417
  Transmission Date: 20180711
  Serious: No
  Sender: FDA-Public Use
  Company Number: US-ALLERGAN-1305932US

PATIENT
  Sex: Male

DRUGS (3)
  1. PROLIA [Concomitant]
     Active Substance: DENOSUMAB
     Indication: OSTEOPOROSIS
  2. LUMIGAN [Suspect]
     Active Substance: BIMATOPROST
     Indication: GLAUCOMA
     Dosage: 2 GTT, QD
     Route: 047
     Dates: start: 2009
  3. PROLIA [Concomitant]
     Active Substance: DENOSUMAB
     Indication: BONE DISORDER

REACTIONS (6)
  - Ocular discomfort [Recovered/Resolved]
  - Expired product administered [Unknown]
  - Poor quality sleep [Recovered/Resolved]
  - Hypersensitivity [Unknown]
  - Eyelid bleeding [Recovered/Resolved]
  - Eyelids pruritus [Recovered/Resolved]
